FAERS Safety Report 9005963 (Version 1)
Quarter: 2013Q1

REPORT INFORMATION
  Report Type: Spontaneous
  Country: US (occurrence: US)
  Receive Date: 20130110
  Receipt Date: 20130110
  Transmission Date: 20140127
  Serious: Yes (Other)
  Sender: FDA-Public Use
  Company Number: US-009507513-0901USA02262

PATIENT
  Age: 73 Year
  Sex: Female
  Weight: 63.5 kg

DRUGS (1)
  1. SINGULAIR [Suspect]
     Indication: ASTHMA
     Dosage: 10 MG, QD
     Route: 048
     Dates: start: 20020115, end: 20080401

REACTIONS (5)
  - Depression [Recovered/Resolved]
  - Mental disorder [Recovered/Resolved]
  - Restless legs syndrome [Recovered/Resolved]
  - Somnolence [Recovered/Resolved]
  - Weight increased [Recovering/Resolving]
